FAERS Safety Report 11791693 (Version 1)
Quarter: 2015Q4

REPORT INFORMATION
  Report Type: Spontaneous
  Country: DE (occurrence: DE)
  Receive Date: 20151201
  Receipt Date: 20151201
  Transmission Date: 20160305
  Serious: Yes (Hospitalization)
  Sender: FDA-Public Use
  Company Number: DE-ASTRAZENECA-2015SF19790

PATIENT
  Age: 45 Year
  Sex: Male

DRUGS (14)
  1. SEROQUEL XR [Suspect]
     Active Substance: QUETIAPINE FUMARATE
     Route: 048
     Dates: start: 20140708, end: 20140723
  2. SEROQUEL XR [Suspect]
     Active Substance: QUETIAPINE FUMARATE
     Route: 048
     Dates: start: 20140728
  3. SEROQUEL XR [Suspect]
     Active Substance: QUETIAPINE FUMARATE
     Route: 048
     Dates: start: 20140603, end: 20140616
  4. SEROQUEL XR [Suspect]
     Active Substance: QUETIAPINE FUMARATE
     Route: 048
     Dates: start: 20140724
  5. SEROQUEL XR [Suspect]
     Active Substance: QUETIAPINE FUMARATE
     Route: 048
     Dates: start: 20140531
  6. SEROQUEL XR [Suspect]
     Active Substance: QUETIAPINE FUMARATE
     Route: 048
     Dates: start: 20140617, end: 20140707
  7. CITALOPRAM [Suspect]
     Active Substance: CITALOPRAM HYDROBROMIDE
     Route: 048
     Dates: start: 20140718, end: 20140724
  8. CITALOPRAM [Suspect]
     Active Substance: CITALOPRAM HYDROBROMIDE
     Route: 048
     Dates: start: 20140725, end: 20140728
  9. SEROQUEL XR [Suspect]
     Active Substance: QUETIAPINE FUMARATE
     Route: 048
     Dates: start: 20140529, end: 20140530
  10. SEROQUEL XR [Suspect]
     Active Substance: QUETIAPINE FUMARATE
     Route: 048
     Dates: start: 20140527, end: 20140528
  11. SEROQUEL XR [Suspect]
     Active Substance: QUETIAPINE FUMARATE
     Route: 048
     Dates: start: 20140601, end: 20140602
  12. CITALOPRAM [Suspect]
     Active Substance: CITALOPRAM HYDROBROMIDE
     Route: 048
     Dates: start: 20140510
  13. SEROQUEL XR [Suspect]
     Active Substance: QUETIAPINE FUMARATE
     Route: 048
     Dates: start: 20140522, end: 20140526
  14. CITALOPRAM [Suspect]
     Active Substance: CITALOPRAM HYDROBROMIDE
     Route: 048
     Dates: start: 20140511, end: 20140717

REACTIONS (1)
  - Erectile dysfunction [Recovered/Resolved]

NARRATIVE: CASE EVENT DATE: 20140728
